FAERS Safety Report 4500656-9 (Version None)
Quarter: 2004Q4

REPORT INFORMATION
  Report Type: 
  Country: None (occurrence: None)
  Receive Date: 20041112
  Receipt Date: 20041112
  Transmission Date: 20050328
  Serious: Yes (Hospitalization)
  Sender: FDA-Public Use
  Company Number: None

PATIENT
  Age: 44 Year
  Sex: Female
  Weight: 64.8644 kg

DRUGS (3)
  1. AMOXICILLIN [Suspect]
  2. PRILOSEC [Concomitant]
  3. BIRTH CONTROL PILLS [Concomitant]

REACTIONS (3)
  - ARTHRALGIA [None]
  - ERYTHEMA MULTIFORME [None]
  - RASH GENERALISED [None]
